FAERS Safety Report 25797697 (Version 1)
Quarter: 2025Q3

REPORT INFORMATION
  Report Type: Spontaneous
  Country: US (occurrence: US)
  Receive Date: 20250912
  Receipt Date: 20250912
  Transmission Date: 20251020
  Serious: Yes (Other)
  Sender: REGENERON
  Company Number: US-REGENERON PHARMACEUTICALS, INC.-2025-137395

PATIENT
  Age: 90 Year
  Sex: Male

DRUGS (3)
  1. EYLEA HD [Suspect]
     Active Substance: AFLIBERCEPT
     Indication: Neovascular age-related macular degeneration
  2. EYLEA HD [Suspect]
     Active Substance: AFLIBERCEPT
     Dates: start: 20250819, end: 20250819
  3. EYLEA HD [Suspect]
     Active Substance: AFLIBERCEPT
     Dates: start: 20250819, end: 20250819

REACTIONS (3)
  - Vitritis [Recovering/Resolving]
  - Anterior chamber cell [Recovering/Resolving]
  - Optic nerve disorder [Recovering/Resolving]

NARRATIVE: CASE EVENT DATE: 20250801
